FAERS Safety Report 13710149 (Version 1)
Quarter: 2017Q3

REPORT INFORMATION
  Report Type: Spontaneous
  Country: US (occurrence: US)
  Receive Date: 20170703
  Receipt Date: 20170703
  Transmission Date: 20171127
  Serious: No
  Sender: FDA-Public Use
  Company Number: US-TEVA-766161ACC

PATIENT
  Sex: Male

DRUGS (1)
  1. LIDOCAINE HYDROCHLORIDE. [Suspect]
     Active Substance: LIDOCAINE HYDROCHLORIDE
     Indication: POST HERPETIC NEURALGIA
     Dates: start: 20170425

REACTIONS (2)
  - Drug effect decreased [Unknown]
  - Discomfort [Unknown]

NARRATIVE: CASE EVENT DATE: 20170425
